FAERS Safety Report 18330012 (Version 1)
Quarter: 2020Q3

REPORT INFORMATION
  Report Type: Spontaneous
  Country: FR (occurrence: FR)
  Receive Date: 20200930
  Receipt Date: 20200930
  Transmission Date: 20201103
  Serious: Yes (Other)
  Sender: FDA-Public Use
  Company Number: FR-ASTRAZENECA-2020SF08336

PATIENT
  Age: 25390 Day
  Sex: Female
  Weight: 87 kg

DRUGS (6)
  1. XARELTO [Concomitant]
     Active Substance: RIVAROXABAN
     Indication: DEEP VEIN THROMBOSIS
  2. ZYLORIC [Concomitant]
     Active Substance: ALLOPURINOL
     Indication: DEEP VEIN THROMBOSIS
  3. LIPANTHYL [Concomitant]
     Active Substance: FENOFIBRATE
     Indication: DEEP VEIN THROMBOSIS
  4. RENITEC [Concomitant]
     Indication: DEEP VEIN THROMBOSIS
  5. FASENRA [Suspect]
     Active Substance: BENRALIZUMAB
     Indication: ASTHMA
     Dosage: 30.0MG UNKNOWN
     Route: 058
     Dates: start: 20200821
  6. LYRICA [Concomitant]
     Active Substance: PREGABALIN
     Indication: DEEP VEIN THROMBOSIS

REACTIONS (6)
  - Asthenia [Unknown]
  - Asthma [Unknown]
  - Pyrexia [Unknown]
  - Headache [Unknown]
  - Tremor [Unknown]
  - Dyspnoea [Unknown]

NARRATIVE: CASE EVENT DATE: 20200821
